FAERS Safety Report 6966083-X (Version None)
Quarter: 2010Q3

REPORT INFORMATION
  Report Type: 
  Country: None (occurrence: None)
  Receive Date: 20100903
  Receipt Date: 20100823
  Transmission Date: 20110219
  Serious: Yes (Hospitalization, Other)
  Sender: FDA-Public Use
  Company Number: PHHY2010US56049

PATIENT
  Sex: Female

DRUGS (4)
  1. EXTAVIA [Suspect]
     Indication: MULTIPLE SCLEROSIS
     Dosage: 0.25 MG, QOD
     Route: 058
     Dates: start: 20100307
  2. QUINAPRIL HYDROCHLORIDE AND HYDROCHLOROTHIAZIDE [Concomitant]
     Dosage: 1 DF, QD
  3. TRAMADOL HCL [Concomitant]
     Dosage: 50 MG, BID
  4. VITAMIN D [Concomitant]
     Dosage: 5000

REACTIONS (2)
  - KNEE ARTHROPLASTY [None]
  - MULTIPLE SCLEROSIS RELAPSE [None]
